FAERS Safety Report 9288994 (Version 1)
Quarter: 2013Q2

REPORT INFORMATION
  Report Type: Spontaneous
  Country: US (occurrence: US)
  Receive Date: 20130514
  Receipt Date: 20130514
  Transmission Date: 20140414
  Serious: No
  Sender: FDA-Public Use
  Company Number: US-ASTRAZENECA-2013SE30293

PATIENT
  Sex: 0

DRUGS (2)
  1. ARIMIDEX [Suspect]
     Route: 048
  2. AROMASIN [Concomitant]

REACTIONS (4)
  - Abdominal discomfort [Unknown]
  - Bone disorder [Unknown]
  - Gait disturbance [Unknown]
  - Bone pain [Unknown]
